FAERS Safety Report 18877270 (Version 1)
Quarter: 2021Q1

REPORT INFORMATION
  Report Type: Report from Study
  Country: MA (occurrence: MA)
  Receive Date: 20210211
  Receipt Date: 20210211
  Transmission Date: 20210420
  Serious: Yes (Death, Hospitalization)
  Sender: FDA-Public Use
  Company Number: NVSC2021MA030998

PATIENT
  Age: 71 Year
  Sex: Female

DRUGS (1)
  1. VOTRIENT [Suspect]
     Active Substance: PAZOPANIB HYDROCHLORIDE
     Indication: RENAL NEOPLASM
     Dosage: 400 MG
     Route: 048
     Dates: start: 20200924

REACTIONS (2)
  - COVID-19 [Fatal]
  - Immunodeficiency [Unknown]

NARRATIVE: CASE EVENT DATE: 20201102
